FAERS Safety Report 5482479-X (Version None)
Quarter: 2007Q4

REPORT INFORMATION
  Report Type: 
  Country: None (occurrence: None)
  Receive Date: 20071011
  Receipt Date: 20071010
  Transmission Date: 20080405
  Serious: Yes (Other)
  Sender: FDA-Public Use
  Company Number: HQWYE282624SEP07

PATIENT

DRUGS (1)
  1. AMIODARONE HCL [Suspect]
     Dosage: UNKNOWN
     Route: 048
     Dates: start: 20070501, end: 20070820

REACTIONS (3)
  - HYPOGLYCAEMIA [None]
  - HYPONATRAEMIA [None]
  - TORSADE DE POINTES [None]
